FAERS Safety Report 20264199 (Version 1)
Quarter: 2021Q4

REPORT INFORMATION
  Report Type: Spontaneous
  Country: US (occurrence: None)
  Receive Date: 20211231
  Receipt Date: 20211231
  Transmission Date: 20220303
  Serious: No
  Sender: FDA-Public Use
  Company Number: 2021A872424

PATIENT
  Sex: Female
  Weight: 59 kg

DRUGS (1)
  1. BREZTRI [Suspect]
     Active Substance: BUDESONIDE\FORMOTEROL\GLYCOPYRROLATE
     Indication: Chronic obstructive pulmonary disease
     Dosage: 1 OR 2 PUFFS BID
     Route: 055
     Dates: start: 202110

REACTIONS (10)
  - Memory impairment [Unknown]
  - Ill-defined disorder [Unknown]
  - Musculoskeletal chest pain [Unknown]
  - Pain [Unknown]
  - Vomiting [Unknown]
  - Illness [Unknown]
  - Dairy intolerance [Unknown]
  - Gastrointestinal disorder [Unknown]
  - Back pain [Unknown]
  - Weight increased [Unknown]
